FAERS Safety Report 16355024 (Version 1)
Quarter: 2019Q2

REPORT INFORMATION
  Report Type: Spontaneous
  Country: CO (occurrence: CO)
  Receive Date: 20190524
  Receipt Date: 20190524
  Transmission Date: 20190711
  Serious: Yes (Hospitalization, Other)
  Sender: FDA-Public Use
  Company Number: CO-009507513-1904COL007563

PATIENT
  Age: 63 Year
  Sex: Male

DRUGS (3)
  1. TENOFOVIR DISOPROXIL FUMARATE. [Suspect]
     Active Substance: TENOFOVIR DISOPROXIL FUMARATE
     Indication: HIV INFECTION
     Dosage: UNK
  2. ISENTRESS [Suspect]
     Active Substance: RALTEGRAVIR POTASSIUM
     Indication: HIV INFECTION
     Dosage: UNK
     Route: 048
     Dates: start: 2009
  3. EMTRICITABINE [Suspect]
     Active Substance: EMTRICITABINE
     Indication: HIV INFECTION
     Dosage: UNK

REACTIONS (8)
  - Insomnia [Unknown]
  - Suicidal ideation [Unknown]
  - Liver disorder [Unknown]
  - Staphylococcal infection [Unknown]
  - Forearm fracture [Unknown]
  - Oesophageal candidiasis [Unknown]
  - Liver abscess [Unknown]
  - Depression [Unknown]

NARRATIVE: CASE EVENT DATE: 2017
